FAERS Safety Report 7647443-0 (Version None)
Quarter: 2011Q3

REPORT INFORMATION
  Report Type: 
  Country: None (occurrence: None)
  Receive Date: 20110726
  Receipt Date: 20110712
  Transmission Date: 20111222
  Serious: Yes (Hospitalization)
  Sender: FDA-Public Use
  Company Number: DSM-2011-00697

PATIENT
  Age: 82 Year
  Sex: Male

DRUGS (5)
  1. BACTRIM [Suspect]
     Indication: URINARY TRACT INFECTION
     Dosage: 2 DOSAGE FORMS (1 DOSAGE FORMS, 2 IN 1 D),ORAL
     Route: 048
     Dates: start: 20110404, end: 20110413
  2. PARIET(RABEPRAZOLE SODIUM)  ( 20 MILLIGRAMS, GASTRO-RESISTANT [Suspect]
     Dosage: 20 MG ( 20 MG, 1 IN 1 D) ORAL
     Dates: end: 20110416
  3. ESCITALOPRAM OXALATE [Suspect]
     Indication: DEPRESSION
     Dosage: 1 DOSAGE FORMS (1 DOSAGE FORMS,1 IN 1 D), ORAL
     Route: 048
     Dates: start: 20110401
  4. ASPIRIN [Suspect]
     Indication: CARDIOVASCULAR EVENT PROPHYLAXIS
     Dosage: 75 MG (75 MG, 1 IN 1 D), ORAL
     Route: 048
     Dates: end: 20110416
  5. AMLODIPINE BESYLATE AND OLMESARTAN MEDOXOMIL [Suspect]
     Indication: HYPERTENSION
     Dosage: 1 DOSAGE FORMS (1 DOSAGE FORMS, 1 IN 1 D), ORAL
     Route: 048
     Dates: end: 20110407

REACTIONS (11)
  - MEDICAL DEVICE COMPLICATION [None]
  - DEPRESSION [None]
  - ANAEMIA [None]
  - BLADDER DILATATION [None]
  - THROMBOCYTOPENIA [None]
  - STREPTOCOCCAL URINARY TRACT INFECTION [None]
  - BLOOD THYROID STIMULATING HORMONE DECREASED [None]
  - RENAL FAILURE ACUTE [None]
  - BALANITIS [None]
  - PROSTATIC SPECIFIC ANTIGEN INCREASED [None]
  - CHOLESTASIS [None]
